FAERS Safety Report 4620794-X (Version None)
Quarter: 2005Q1

REPORT INFORMATION
  Report Type: 
  Country: None (occurrence: None)
  Receive Date: 20050325
  Receipt Date: 20050317
  Transmission Date: 20050727
  Serious: Yes (Life-Threatening, Other)
  Sender: FDA-Public Use
  Company Number: 2005047228

PATIENT
  Age: 56 Year
  Sex: Male
  Weight: 112.0385 kg

DRUGS (8)
  1. SOLU-MEDROL [Suspect]
     Indication: ILL-DEFINED DISORDER
     Dates: start: 20040501
  2. INTERFERON BETA (INTERFERON BETA) [Suspect]
     Indication: MULTIPLE SCLEROSIS
     Dosage: 44 MCG/0.5 ML (3 TIMES WEEKLY), SUBCUTANEOUS
     Route: 058
     Dates: start: 20040604
  3. VALPROATE SODIUM [Concomitant]
  4. METHYLPHENIDATE HCL [Concomitant]
  5. HYDROCHLOROTHIAZIDE [Concomitant]
  6. SIMVASTATIN [Concomitant]
  7. RABEPRAZOLE SODIUM [Concomitant]
  8. ASPIRIN [Concomitant]

REACTIONS (6)
  - CONDITION AGGRAVATED [None]
  - DYSKINESIA [None]
  - GRAND MAL CONVULSION [None]
  - INFLUENZA LIKE ILLNESS [None]
  - RESPIRATORY ARREST [None]
  - TRANSIENT ISCHAEMIC ATTACK [None]
